FAERS Safety Report 11434453 (Version 1)
Quarter: 2015Q3

REPORT INFORMATION
  Report Type: Spontaneous
  Country: CN (occurrence: CN)
  Receive Date: 20150831
  Receipt Date: 20150831
  Transmission Date: 20151125
  Serious: Yes (Other)
  Sender: FDA-Public Use
  Company Number: CN-SA-2015SA130211

PATIENT
  Age: 43 Year
  Sex: Male

DRUGS (3)
  1. THYMOGLOBULIN [Suspect]
     Active Substance: LAPINE T-LYMPHOCYTE IMMUNE GLOBULIN
     Indication: APLASTIC ANAEMIA
     Route: 042
     Dates: start: 20150822, end: 20150824
  2. BUSULFAN [Concomitant]
     Active Substance: BUSULFAN
     Indication: APLASTIC ANAEMIA
  3. CYCLOPHOSPHAMIDE. [Concomitant]
     Active Substance: CYCLOPHOSPHAMIDE
     Indication: APLASTIC ANAEMIA

REACTIONS (3)
  - Heart rate increased [Unknown]
  - Loss of consciousness [Unknown]
  - Hyperpyrexia [Unknown]

NARRATIVE: CASE EVENT DATE: 20150825
